FAERS Safety Report 17305720 (Version 1)
Quarter: 2020Q1

REPORT INFORMATION
  Report Type: Spontaneous
  Country: US (occurrence: US)
  Receive Date: 20200123
  Receipt Date: 20200123
  Transmission Date: 20200409
  Serious: Yes (Life-Threatening, Hospitalization)
  Sender: FDA-Public Use
  Company Number: US-009507513-2001USA007346

PATIENT
  Age: 75 Year
  Sex: Female
  Weight: 71.28 kg

DRUGS (6)
  1. KLONOPIN [Suspect]
     Active Substance: CLONAZEPAM
     Indication: ACCIDENTAL EXPOSURE TO PRODUCT
     Dosage: DAILY DOSE: 2 MILLIGRAM
     Route: 048
     Dates: start: 20000608, end: 20000608
  2. MEGACE [Suspect]
     Active Substance: MEGESTROL ACETATE
     Indication: ACCIDENTAL EXPOSURE TO PRODUCT
     Dosage: 1 UNK, TOTAL
     Route: 048
     Dates: start: 20000608, end: 20000608
  3. REGLAN [Suspect]
     Active Substance: METOCLOPRAMIDE HYDROCHLORIDE
     Indication: ACCIDENTAL EXPOSURE TO PRODUCT
     Dosage: 1 UNK, TOTAL
     Route: 048
     Dates: start: 20000608, end: 20000608
  4. REMERON [Suspect]
     Active Substance: MIRTAZAPINE
     Indication: ACCIDENTAL EXPOSURE TO PRODUCT
     Dosage: 1 UNK, TOTAL
     Route: 048
     Dates: start: 20000608, end: 20000608
  5. CLAFORAN [Concomitant]
     Active Substance: CEFOTAXIME SODIUM
     Route: 042
     Dates: start: 20000607
  6. VISTARIL [Suspect]
     Active Substance: HYDROXYZINE PAMOATE
     Indication: ACCIDENTAL EXPOSURE TO PRODUCT
     Dosage: DAILY DOSE: 50 MILLIGRAM
     Route: 048
     Dates: start: 20000608, end: 20000608

REACTIONS (9)
  - Fatigue [Recovering/Resolving]
  - Miosis [Recovering/Resolving]
  - Gait disturbance [Recovering/Resolving]
  - Wrong patient received product [Recovered/Resolved]
  - Amnesia [Recovering/Resolving]
  - Eye swelling [Recovering/Resolving]
  - Cough [Recovering/Resolving]
  - Oxygen saturation decreased [Recovering/Resolving]
  - Loss of consciousness [Recovered/Resolved]

NARRATIVE: CASE EVENT DATE: 20000608
